FAERS Safety Report 8552415-8 (Version None)
Quarter: 2012Q3

REPORT INFORMATION
  Report Type: 
  Country: None (occurrence: None)
  Receive Date: 20120718
  Receipt Date: 20120702
  Transmission Date: 20120928
  Serious: Yes (Other)
  Sender: FDA-Public Use
  Company Number: VAL_00783_2012

PATIENT
  Age: 60 Year
  Sex: Female

DRUGS (1)
  1. ROCALTROL [Suspect]
     Indication: PRODUCT USED FOR UNKNOWN INDICATION
     Dosage: DF ORAL
     Route: 048

REACTIONS (2)
  - BILE DUCT STONE [None]
  - JAUNDICE [None]
